FAERS Safety Report 24220939 (Version 1)
Quarter: 2024Q3

REPORT INFORMATION
  Report Type: Spontaneous
  Country: IL (occurrence: IL)
  Receive Date: 20240819
  Receipt Date: 20240819
  Transmission Date: 20241016
  Serious: Yes (Other)
  Sender: STRIDES
  Company Number: IL-STRIDES ARCOLAB LIMITED-2024SP010238

PATIENT
  Age: 46 Year
  Sex: Female

DRUGS (8)
  1. PREDNISOLONE [Interacting]
     Active Substance: PREDNISOLONE
     Indication: Endocrine ophthalmopathy
     Dosage: 20 MILLIGRAM, QD
     Route: 048
  2. PREDNISOLONE [Interacting]
     Active Substance: PREDNISOLONE
     Dosage: 40 MILLIGRAM, ONCE A WEEK (PER WEEK)
     Route: 065
  3. EUTHYROX [Interacting]
     Active Substance: LEVOTHYROXINE SODIUM
     Indication: Endocrine ophthalmopathy
     Dosage: 800 MICROGRAM, ONCE A WEEK (PER WEEK)
     Route: 065
  4. EUTHYROX [Interacting]
     Active Substance: LEVOTHYROXINE SODIUM
     Dosage: 1200 MICROGRAM, ONCE A WEEK (PER WEEK)
     Route: 065
  5. RIFAMPIN [Interacting]
     Active Substance: RIFAMPIN
     Indication: Latent tuberculosis
     Dosage: 600 MILLIGRAM, QD
     Route: 065
  6. PROPYLTHIOURACIL [Concomitant]
     Active Substance: PROPYLTHIOURACIL
     Indication: Graves^ disease
     Dosage: UNK
     Route: 065
  7. METHIMAZOLE [Concomitant]
     Active Substance: METHIMAZOLE
     Indication: Graves^ disease
     Dosage: UNK
     Route: 065
  8. METHYLPREDNISOLONE [Concomitant]
     Active Substance: METHYLPREDNISOLONE
     Indication: Endocrine ophthalmopathy
     Dosage: UNK
     Route: 042

REACTIONS (2)
  - Endocrine ophthalmopathy [Recovered/Resolved]
  - Drug interaction [Recovered/Resolved]
